FAERS Safety Report 9520706 (Version 1)
Quarter: 2013Q1

REPORT INFORMATION
  Report Type: Spontaneous
  Country: US (occurrence: None)
  Receive Date: 20130305
  Receipt Date: 20130305
  Transmission Date: 20140127
  Serious: Yes (Hospitalization, Other)
  Sender: FDA-Public Use
  Company Number: 163-21880-12040732

PATIENT
  Age: 72 Year
  Sex: Female

DRUGS (10)
  1. REVLIMID [Suspect]
     Indication: PLASMA CELL MYELOMA
     Dosage: 10 MG, 2 IN 1 D, PO
     Route: 048
     Dates: start: 201101
  2. LIPITOR (ATORVASTATIN) (UNKNOWN) [Concomitant]
  3. AMITRIPTYLINE (AMITRIPTYLINE) (UNKNOWN) [Concomitant]
  4. ASA (ACETYLSALICYCYLIC ACID) (UNKNOWN) [Concomitant]
  5. GLIPIZIDE (GLIPIZIDE) (UNKNOWN) [Concomitant]
  6. LEVOTHYROID (LEVOTHYROXINE) (UNKNOWN) [Concomitant]
  7. METOPROLOL (METOPROLOL) (UNKNOWN) [Concomitant]
  8. RANITIDINE (RANITIDINE) (UNKNOWN) [Concomitant]
  9. BORTEZOMIB (BORTEZOMIB) (UKNOWN) [Concomitant]
  10. ZOMETA (ZOLEDRONIC ACID) (UNKNOWN) [Concomitant]

REACTIONS (2)
  - Compression fracture [None]
  - Blood potassium increased [None]
